APPROVED DRUG PRODUCT: LIDOCAINE HYDROCHLORIDE
Active Ingredient: LIDOCAINE HYDROCHLORIDE
Strength: 1%
Dosage Form/Route: INJECTABLE;INJECTION
Application: A214336 | Product #001 | TE Code: AP
Applicant: ASPIRO PHARMA LTD
Approved: Nov 8, 2021 | RLD: No | RS: No | Type: RX